FAERS Safety Report 22714069 (Version 2)
Quarter: 2023Q4

REPORT INFORMATION
  Report Type: Spontaneous
  Country: JP (occurrence: JP)
  Receive Date: 20230718
  Receipt Date: 20231121
  Transmission Date: 20240110
  Serious: Yes (Other)
  Sender: FDA-Public Use
  Company Number: JP-002147023-NVSJ2023JP011145

PATIENT
  Sex: Female

DRUGS (1)
  1. BEOVU [Suspect]
     Active Substance: BROLUCIZUMAB-DBLL
     Indication: Diabetic retinal oedema
     Dosage: 6 MG
     Route: 031
     Dates: start: 20230524, end: 20230607

REACTIONS (1)
  - Retinal perivascular sheathing [Recovered/Resolved]

NARRATIVE: CASE EVENT DATE: 20230607
